FAERS Safety Report 19350050 (Version 1)
Quarter: 2021Q2

REPORT INFORMATION
  Report Type: Spontaneous
  Country: US (occurrence: US)
  Receive Date: 20210529
  Receipt Date: 20210529
  Transmission Date: 20210717
  Serious: Yes (Hospitalization)
  Sender: FDA-Public Use
  Company Number: None

PATIENT
  Sex: Female
  Weight: 62.6 kg

DRUGS (3)
  1. TAXOL [Concomitant]
     Active Substance: PACLITAXEL
  2. CARBOPLATIN. [Suspect]
     Active Substance: CARBOPLATIN
  3. DURVALUMAB (MED14736) [Concomitant]
     Active Substance: DURVALUMAB

REACTIONS (5)
  - Loss of therapeutic response [None]
  - Paraesthesia [None]
  - Back pain [None]
  - Intervertebral disc compression [None]
  - Electric shock sensation [None]

NARRATIVE: CASE EVENT DATE: 20210509
